FAERS Safety Report 5732676-0 (Version None)
Quarter: 2008Q2

REPORT INFORMATION
  Report Type: 
  Country: None (occurrence: None)
  Receive Date: 20080509
  Receipt Date: 20080424
  Transmission Date: 20081010
  Serious: No
  Sender: FDA-Public Use
  Company Number: US-BAYER-200810199NA

PATIENT
  Age: 33 Year
  Sex: Female
  Weight: 57 kg

DRUGS (2)
  1. MIRENA [Suspect]
     Indication: CONTRACEPTION
     Route: 015
     Dates: start: 20071123
  2. DICYCLOMINE [Concomitant]
     Indication: IRRITABLE BOWEL SYNDROME
     Route: 048
     Dates: start: 20070801

REACTIONS (2)
  - IUCD COMPLICATION [None]
  - NO ADVERSE EVENT [None]
